FAERS Safety Report 6577298-7 (Version None)
Quarter: 2010Q1

REPORT INFORMATION
  Report Type: 
  Country: None (occurrence: None)
  Receive Date: 20100210
  Receipt Date: 20100128
  Transmission Date: 20100710
  Serious: Yes (Other)
  Sender: FDA-Public Use
  Company Number: PHHY2009JP50915

PATIENT
  Age: 36 Year
  Sex: Male

DRUGS (1)
  1. GLEEVEC [Suspect]
     Indication: LEIOMYOMA
     Dosage: 400 MG, DAILY
     Route: 048
     Dates: start: 20081113, end: 20081211

REACTIONS (6)
  - NEUTROPHIL COUNT DECREASED [None]
  - OESOPHAGEAL OPERATION [None]
  - OESOPHAGEAL STENOSIS [None]
  - OESOPHAGECTOMY [None]
  - OESOPHAGOENTEROSTOMY [None]
  - WHITE BLOOD CELL COUNT DECREASED [None]
